FAERS Safety Report 9890289 (Version 1)
Quarter: 2014Q1

REPORT INFORMATION
  Report Type: Other
  Country: US (occurrence: US)
  Receive Date: 20140212
  Receipt Date: 20140212
  Transmission Date: 20141002
  Serious: Yes (Other)
  Sender: FDA-Public Use
  Company Number: US-BRISTOL-MYERS SQUIBB COMPANY-20162616

PATIENT
  Age: 45 Year
  Sex: Male

DRUGS (2)
  1. EFAVIRENZ [Suspect]
  2. LAMIVUDINE + ZIDOVUDINE [Suspect]

REACTIONS (2)
  - Immune reconstitution inflammatory syndrome [Unknown]
  - Vasculitis cerebral [Unknown]
